FAERS Safety Report 4705522-1 (Version None)
Quarter: 2005Q2

REPORT INFORMATION
  Report Type: 
  Country: None (occurrence: None)
  Receive Date: 20050629
  Receipt Date: 20041110
  Transmission Date: 20051028
  Serious: Yes (Death, Hospitalization, Other)
  Sender: FDA-Public Use
  Company Number: 200413221EU

PATIENT
  Age: 60 Year
  Sex: Male

DRUGS (2)
  1. CISPLATINUM SOLUTION FOR INFUSION [Suspect]
     Indication: NEOPLASM MALIGNANT
     Dosage: CYC IV
     Route: 042
     Dates: start: 20041008
  2. RADIOTHERAPY [Suspect]
     Indication: NEOPLASM MALIGNANT
     Dosage: CYC
     Dates: start: 20041008

REACTIONS (10)
  - APHAGIA [None]
  - ASPIRATION [None]
  - CARDIOPULMONARY FAILURE [None]
  - COAGULOPATHY [None]
  - MUCOSAL INFLAMMATION [None]
  - NEUTROPENIA [None]
  - PNEUMONIA [None]
  - SEPSIS [None]
  - STOMATITIS [None]
  - THROMBOCYTOPENIA [None]
